FAERS Safety Report 24576158 (Version 1)
Quarter: 2024Q4

REPORT INFORMATION
  Report Type: Spontaneous
  Country: US (occurrence: US)
  Receive Date: 20241104
  Receipt Date: 20241104
  Transmission Date: 20250115
  Serious: Yes (Other)
  Sender: CHIESI
  Company Number: US-CHIESI-2024CHF07078

PATIENT
  Age: 37 Year
  Sex: Female

DRUGS (1)
  1. LAMZEDE [Suspect]
     Active Substance: VELMANASE ALFA-TYCV
     Indication: Product used for unknown indication
     Dosage: UNK
     Route: 042

REACTIONS (4)
  - Bedridden [Recovering/Resolving]
  - Osteomyelitis [Recovering/Resolving]
  - Disease progression [Recovering/Resolving]
  - Immunosuppression [Recovering/Resolving]
